FAERS Safety Report 7295577-5 (Version None)
Quarter: 2011Q1

REPORT INFORMATION
  Report Type: 
  Country: None (occurrence: None)
  Receive Date: 20110207
  Receipt Date: 20110124
  Transmission Date: 20110831
  Serious: Yes (Hospitalization)
  Sender: FDA-Public Use
  Company Number: 2011AP000119

PATIENT
  Age: 64 Year
  Sex: Male

DRUGS (5)
  1. METFORMIN HCL [Suspect]
     Indication: PRODUCT USED FOR UNKNOWN INDICATION
     Dosage: 500 MG;PO;QD
     Dates: start: 20090407, end: 20110105
  2. CANDESARTAN CILEXETIL [Concomitant]
  3. AMLODIPINE BESYLATE [Suspect]
     Indication: PRODUCT USED FOR UNKNOWN INDICATION
     Dosage: 10 MG;PO;QD
     Route: 048
     Dates: start: 20090304, end: 20110105
  4. BENDROFLUAZIDE (BENDROFLUAZIDE) [Suspect]
     Indication: PRODUCT USED FOR UNKNOWN INDICATION
     Dosage: 25 MG;PO;QD
     Dates: start: 20090813, end: 20110105
  5. SUNITINIB MALATE [Suspect]
     Indication: TRANSITIONAL CELL CARCINOMA
     Dosage: 25 MG;PO
     Route: 048
     Dates: start: 20100911, end: 20110105

REACTIONS (3)
  - HYPOTENSION [None]
  - INFLUENZA LIKE ILLNESS [None]
  - DIZZINESS [None]
